FAERS Safety Report 16613716 (Version 3)
Quarter: 2020Q2

REPORT INFORMATION
  Report Type: Report from Study
  Country: CN (occurrence: CN)
  Receive Date: 20190723
  Receipt Date: 20200401
  Transmission Date: 20200713
  Serious: Yes (Hospitalization)
  Sender: FDA-Public Use
  Company Number: CN-ROCHE-1873766

PATIENT
  Age: 57 Year
  Sex: Female
  Weight: 55 kg

DRUGS (61)
  1. PERTUZUMAB. [Suspect]
     Active Substance: PERTUZUMAB
     Dosage: MAINTANANCE DOSE?DATE OF MOST RECENT DOSE PRIOR TO SAE: 01/MAR/2017
     Route: 042
     Dates: start: 20161221
  2. DEXAMETHASONE SODIUM PHOSPHATE. [Concomitant]
     Active Substance: DEXAMETHASONE SODIUM PHOSPHATE
     Route: 065
     Dates: start: 20170712, end: 20170713
  3. DEXAMETHASONE SODIUM PHOSPHATE. [Concomitant]
     Active Substance: DEXAMETHASONE SODIUM PHOSPHATE
     Route: 065
     Dates: start: 20170817, end: 20170817
  4. DEXAMETHASONE SODIUM PHOSPHATE. [Concomitant]
     Active Substance: DEXAMETHASONE SODIUM PHOSPHATE
     Route: 065
     Dates: start: 20170804, end: 20170805
  5. PANTOPRAZOLE SODIUM. [Concomitant]
     Active Substance: PANTOPRAZOLE SODIUM
     Route: 065
     Dates: start: 20161130, end: 20161202
  6. FRUCTOSE [Concomitant]
     Active Substance: FRUCTOSE
     Route: 065
     Dates: start: 20161130, end: 20161202
  7. POLYENE PHOSPHATIDYLCHOLINE [Concomitant]
     Active Substance: PHOSPHOLIPID
     Dosage: LIVER PROTECTION
     Route: 065
     Dates: start: 20170228, end: 20170302
  8. VITAMIN B6 [Concomitant]
     Active Substance: PYRIDOXINE HYDROCHLORIDE
     Route: 065
     Dates: start: 20170228, end: 20170302
  9. PALONOSETRON HYDROCHLORIDE. [Concomitant]
     Active Substance: PALONOSETRON HYDROCHLORIDE
     Route: 065
     Dates: start: 20170714, end: 20170714
  10. BICYCLOL [Concomitant]
     Active Substance: BICYCLOL
     Indication: LIVER INJURY
     Route: 065
     Dates: start: 20170803, end: 20170805
  11. BLOOD [Concomitant]
     Active Substance: WHOLE BLOOD
     Indication: ANAEMIA
     Route: 065
     Dates: start: 20170817, end: 20170817
  12. BISOPROLOL [Concomitant]
     Active Substance: BISOPROLOL
     Route: 065
     Dates: start: 20170424, end: 20170720
  13. TROPISETRON HYDROCHLORIDE [Concomitant]
     Active Substance: TROPISETRON HYDROCHLORIDE
     Route: 065
     Dates: start: 20170228, end: 20170302
  14. COENZYME COMPLEX [Concomitant]
     Active Substance: UNSPECIFIED INGREDIENT
     Dosage: NUTRITION
     Route: 065
     Dates: start: 20161130, end: 20161202
  15. COENZYME COMPLEX [Concomitant]
     Active Substance: UNSPECIFIED INGREDIENT
     Route: 065
     Dates: start: 20170228, end: 20170302
  16. MANNATIDE [Concomitant]
     Route: 065
     Dates: start: 20170804, end: 20170805
  17. MEZLOCILLIN SODIUM [Concomitant]
     Active Substance: MEZLOCILLIN SODIUM
     Indication: BACTERAEMIA
     Route: 065
     Dates: start: 20170324, end: 20170412
  18. MEZLOCILLIN SODIUM [Concomitant]
     Active Substance: MEZLOCILLIN SODIUM
     Route: 065
     Dates: start: 20170816, end: 20170904
  19. NIFEDIPINE. [Concomitant]
     Active Substance: NIFEDIPINE
     Indication: HYPERTENSION
     Route: 065
     Dates: start: 20170405
  20. TRASTUZUMAB. [Suspect]
     Active Substance: TRASTUZUMAB
     Dosage: LOADING DOSE.?DATE OF MOST RECENT DOSE PRIOR TO SAE: 30/NOV/2016.
     Route: 041
     Dates: start: 20161130
  21. CYCLOPHOSPHAMIDE. [Suspect]
     Active Substance: CYCLOPHOSPHAMIDE
     Dosage: MOST RECENT DOSE PRIOR TO SAE- 04/AUG/2017, 604MG?INITIAL DOSE 500-600 MG/M2, EVERY 3 WEEKS FOR THRE
     Route: 042
     Dates: start: 20170712
  22. GLUCOSE [Concomitant]
     Active Substance: DEXTROSE
  23. MANNATIDE [Concomitant]
     Route: 065
     Dates: start: 20170228, end: 20170302
  24. MANNATIDE [Concomitant]
     Route: 065
     Dates: start: 20170712, end: 20170713
  25. PROMETHAZINE HYDROCHLORIDE. [Concomitant]
     Active Substance: PROMETHAZINE HYDROCHLORIDE
     Indication: HYPERSENSITIVITY
     Route: 065
     Dates: start: 20170817, end: 20170817
  26. PANTOPRAZOLE SODIUM. [Concomitant]
     Active Substance: PANTOPRAZOLE SODIUM
     Route: 065
     Dates: start: 20170228, end: 20170302
  27. SODIUM CHLORIDE. [Concomitant]
     Active Substance: SODIUM CHLORIDE
     Route: 065
     Dates: start: 20161130, end: 20161202
  28. VITAMIN C [Concomitant]
     Active Substance: ASCORBIC ACID
     Route: 065
     Dates: start: 20161130, end: 20161201
  29. CREATINE PHOSPHATE SODIUM [Concomitant]
     Active Substance: CREATINE
     Route: 065
     Dates: start: 20161130, end: 20161202
  30. POLYENE PHOSPHATIDYLCHOLINE [Concomitant]
     Active Substance: PHOSPHOLIPID
     Route: 065
     Dates: start: 20161130, end: 20161202
  31. COMPOUND DIISOPROPYLAMINE DICHLOROACETATE [Concomitant]
     Active Substance: DIISOPROPYLAMMONIUM DICHLOROACETATE
     Route: 065
     Dates: start: 20161224, end: 20161224
  32. LANSOPRAZOLE. [Concomitant]
     Active Substance: LANSOPRAZOLE
     Route: 065
     Dates: start: 20170712, end: 20170714
  33. LOPERAMIDE HYDROCHLORIDE. [Concomitant]
     Active Substance: LOPERAMIDE HYDROCHLORIDE
     Indication: DIARRHOEA
     Route: 065
     Dates: start: 20170718, end: 20170721
  34. PROMETHAZINE HYDROCHLORIDE. [Concomitant]
     Active Substance: PROMETHAZINE HYDROCHLORIDE
     Indication: BACTERAEMIA
     Route: 030
     Dates: start: 20170118, end: 20170118
  35. DEXAMETHASONE SODIUM PHOSPHATE. [Concomitant]
     Active Substance: DEXAMETHASONE SODIUM PHOSPHATE
     Indication: BACTERAEMIA
     Route: 042
     Dates: start: 20161130, end: 20161202
  36. DEXAMETHASONE SODIUM PHOSPHATE. [Concomitant]
     Active Substance: DEXAMETHASONE SODIUM PHOSPHATE
     Route: 042
     Dates: start: 20170118, end: 20170118
  37. TROPISETRON HYDROCHLORIDE [Concomitant]
     Active Substance: TROPISETRON HYDROCHLORIDE
     Route: 065
     Dates: start: 20170803, end: 20170805
  38. VITAMIN C [Concomitant]
     Active Substance: ASCORBIC ACID
     Route: 065
     Dates: start: 20170228, end: 20170302
  39. POLYENE PHOSPHATIDYLCHOLINE [Concomitant]
     Active Substance: PHOSPHOLIPID
     Route: 065
     Dates: start: 20170712, end: 20170714
  40. PALONOSETRON HYDROCHLORIDE. [Concomitant]
     Active Substance: PALONOSETRON HYDROCHLORIDE
     Indication: VOMITING
     Route: 065
     Dates: start: 20170712, end: 20170712
  41. AMIFOSTINE. [Concomitant]
     Active Substance: AMIFOSTINE
     Route: 065
     Dates: start: 20170712, end: 20170712
  42. EPIRUBICIN HYDROCHLORIDE. [Suspect]
     Active Substance: EPIRUBICIN HYDROCHLORIDE
     Dosage: MOST RECENT DOSE PRIOR TO SAE- 04/AUG/2017, 121MG?INITIAL DOSE 90-120 MG/M2, EVERY 3 WEEKS FOR THREE
     Route: 042
     Dates: start: 20170712
  43. VITAMIN C [Concomitant]
     Active Substance: ASCORBIC ACID
     Route: 065
     Dates: start: 20170803, end: 20170805
  44. COMPOUND DIISOPROPYLAMINE DICHLOROACETATE [Concomitant]
     Active Substance: DIISOPROPYLAMMONIUM DICHLOROACETATE
     Route: 065
     Dates: start: 20170803, end: 20170805
  45. GLUTATHIONE [Concomitant]
     Active Substance: GLUTATHIONE
     Route: 065
     Dates: start: 20170228, end: 20170302
  46. PHOSPHOCREATINE SODIUM [Concomitant]
     Active Substance: PHOSPHOCREATINE SODIUM
     Route: 065
     Dates: start: 20170803, end: 20170805
  47. PERTUZUMAB. [Suspect]
     Active Substance: PERTUZUMAB
     Dosage: LOADING DOSE?DATE OF MOST RECENT DOSE PRIOR TO SAE: 30/NOV/2016.
     Route: 042
     Dates: start: 20161130
  48. DOCETAXEL. [Suspect]
     Active Substance: DOCETAXEL
     Dosage: DATE OF MOST RECENT DOSE PRIOR TO SECOND EPISODE OF SAE: 01/MAR/2017
     Route: 042
     Dates: start: 20161130
  49. FLUOROURACIL. [Suspect]
     Active Substance: FLUOROURACIL
     Dosage: MOST RECENT DOSE PRIOR TO SAE- 04/AUG/2017, 604MG?INITIAL DOSE 500-600MG/M2, EVERY 3 WEEKS FOR THREE
     Route: 042
     Dates: start: 20170712
  50. LANSOPRAZOLE. [Concomitant]
     Active Substance: LANSOPRAZOLE
     Route: 065
     Dates: start: 20170803, end: 20170805
  51. CALCIUM DIBUTYRYLADENOSINE CYCLOPHOSPHATE [Concomitant]
     Route: 065
     Dates: start: 20170712, end: 20170714
  52. AMIFOSTINE. [Concomitant]
     Active Substance: AMIFOSTINE
     Route: 065
     Dates: start: 20170804, end: 20170804
  53. LOPERAMIDE HYDROCHLORIDE. [Concomitant]
     Active Substance: LOPERAMIDE HYDROCHLORIDE
     Indication: WEIGHT INCREASED
  54. POTASSIUM CITRATE. [Concomitant]
     Active Substance: POTASSIUM CITRATE
     Indication: HYPOKALAEMIA
     Route: 065
     Dates: start: 20170816, end: 20170904
  55. TRASTUZUMAB. [Suspect]
     Active Substance: TRASTUZUMAB
     Dosage: MAINTANANCE DOSE.?DATE OF MOST RECENT DOSE PRIOR TO EPSIODE SECOND SAE: 01/MAR/2017
     Route: 042
     Dates: start: 20161221
  56. TROPISETRON HYDROCHLORIDE [Concomitant]
     Active Substance: TROPISETRON HYDROCHLORIDE
     Indication: VOMITING
     Route: 065
     Dates: start: 20161130, end: 20161202
  57. COENZYME COMPLEX [Concomitant]
     Active Substance: UNSPECIFIED INGREDIENT
     Route: 065
     Dates: start: 20170803, end: 20170805
  58. CREATINE PHOSPHATE SODIUM [Concomitant]
     Active Substance: CREATINE
     Dosage: MYOCARDIAL NUTRIENT
     Route: 065
     Dates: start: 20170228, end: 20170302
  59. GLUTATHIONE [Concomitant]
     Active Substance: GLUTATHIONE
     Route: 065
     Dates: start: 20170712, end: 20170714
  60. PALONOSETRON HYDROCHLORIDE. [Concomitant]
     Active Substance: PALONOSETRON HYDROCHLORIDE
     Route: 065
     Dates: start: 20170714, end: 20170714
  61. LACIDIPINE [Concomitant]
     Active Substance: LACIDIPINE
     Indication: HYPERTENSION
     Route: 065
     Dates: start: 2006

REACTIONS (4)
  - Pneumonia [Recovered/Resolved]
  - Bacteraemia [Recovered/Resolved]
  - Sepsis [Recovered/Resolved]
  - Lung abscess [Recovered/Resolved]

NARRATIVE: CASE EVENT DATE: 20161223
